FAERS Safety Report 6499819-5 (Version None)
Quarter: 2009Q4

REPORT INFORMATION
  Report Type: 
  Country: None (occurrence: None)
  Receive Date: 20091214
  Receipt Date: 20091207
  Transmission Date: 20100525
  Serious: Yes (Hospitalization)
  Sender: FDA-Public Use
  Company Number: 2009029509

PATIENT
  Age: 35 Year
  Sex: Male
  Weight: 63.5036 kg

DRUGS (2)
  1. FENTORA [Suspect]
     Indication: PAIN IN EXTREMITY
     Dosage: 1800 MCG (600 MCG, PRN), BU
     Dates: start: 20090701
  2. FENTORA [Suspect]

REACTIONS (4)
  - HAEMATOMA [None]
  - HERNIA OBSTRUCTIVE [None]
  - INADEQUATE ANALGESIA [None]
  - PRODUCT SOLUBILITY ABNORMAL [None]
